FAERS Safety Report 4761116-3 (Version None)
Quarter: 2005Q3

REPORT INFORMATION
  Report Type: 
  Country: None (occurrence: None)
  Receive Date: 20050901
  Receipt Date: 20050818
  Transmission Date: 20060218
  Serious: Yes (Other)
  Sender: FDA-Public Use
  Company Number: 2005116854

PATIENT
  Sex: Female

DRUGS (2)
  1. PSEUDOEPHEDRINE HCL [Suspect]
     Dosage: 10-12 TABS PER DAY, ORAL
     Route: 048
     Dates: start: 19980101
  2. LORAZEPAM [Concomitant]

REACTIONS (4)
  - DEPRESSION [None]
  - DEPRESSION SUICIDAL [None]
  - DRUG DEPENDENCE [None]
  - TEARFULNESS [None]
